FAERS Safety Report 12725681 (Version 1)
Quarter: 2016Q3

REPORT INFORMATION
  Report Type: Spontaneous
  Country: US (occurrence: US)
  Receive Date: 20160908
  Receipt Date: 20160908
  Transmission Date: 20161109
  Serious: Yes (Life-Threatening, Hospitalization, Disabling)
  Sender: FDA-Public Use
  Company Number: None

PATIENT
  Age: 75 Year
  Sex: Female
  Weight: 69.75 kg

DRUGS (19)
  1. PRADAXA [Suspect]
     Active Substance: DABIGATRAN ETEXILATE MESYLATE
     Indication: ATRIAL FIBRILLATION
     Route: 048
     Dates: start: 20160607, end: 20160704
  2. METFORMIN [Concomitant]
     Active Substance: METFORMIN HYDROCHLORIDE
  3. MONTELUKAST SODIUM. [Concomitant]
     Active Substance: MONTELUKAST SODIUM
  4. VALSARTAN. [Concomitant]
     Active Substance: VALSARTAN
  5. CYSTADANE [Concomitant]
     Active Substance: BETAINE
  6. HYDRALAZINE [Concomitant]
     Active Substance: HYDRALAZINE HYDROCHLORIDE
  7. METANX [Concomitant]
     Active Substance: LEVOMEFOLATE CALCIUM\METHYLCOBALAMIN\PYRIDOXAL PHOSPHATE ANHYDROUS
  8. LEVOTHYROXINE. [Concomitant]
     Active Substance: LEVOTHYROXINE
  9. WARFARIN [Concomitant]
     Active Substance: WARFARIN
  10. OMEPRAZOLE. [Concomitant]
     Active Substance: OMEPRAZOLE
  11. PROVENTIL HFA [Concomitant]
     Active Substance: ALBUTEROL SULFATE
  12. OPTIVE [Suspect]
     Active Substance: CARBOXYMETHYLCELLULOSE SODIUM\GLYCERIN
  13. PRADAXA [Suspect]
     Active Substance: DABIGATRAN ETEXILATE MESYLATE
     Indication: CEREBROVASCULAR ACCIDENT PROPHYLAXIS
     Route: 048
     Dates: start: 20160607, end: 20160704
  14. FLOVENT HFA INHALER [Concomitant]
  15. METRONIDAZOLE. [Concomitant]
     Active Substance: METRONIDAZOLE
  16. MULTAQ [Concomitant]
     Active Substance: DRONEDARONE
  17. OMEPRAZOLE. [Concomitant]
     Active Substance: OMEPRAZOLE
  18. NEOPOLUDEX [Concomitant]
  19. FLINTSTONES WITH IRON [Concomitant]

REACTIONS (8)
  - Hypoxia [None]
  - Gastric ulcer haemorrhage [None]
  - Gastrointestinal haemorrhage [None]
  - Product label confusion [None]
  - Dyspnoea [None]
  - Faeces discoloured [None]
  - Confusional state [None]
  - Anaemia [None]

NARRATIVE: CASE EVENT DATE: 20160704
